FAERS Safety Report 11588370 (Version 1)
Quarter: 2015Q4

REPORT INFORMATION
  Report Type: Spontaneous
  Country: US (occurrence: None)
  Receive Date: 20151001
  Receipt Date: 20151001
  Transmission Date: 20160304
  Serious: Yes (Hospitalization)
  Sender: FDA-Public Use
  Company Number: None

PATIENT

DRUGS (1)
  1. BETAMETHASONE SODIUM PHOSPHATE 6MG/ML JCB LABORATORIES [Suspect]
     Active Substance: BETAMETHASONE SODIUM PHOSPHATE
     Indication: BACK PAIN
     Dosage: ONE SYRINGE; INJECTED INTO SPINAL AREA
     Dates: start: 20150630, end: 20150817

REACTIONS (6)
  - Headache [None]
  - Klebsiella test positive [None]
  - Pyrexia [None]
  - Influenza like illness [None]
  - Product quality issue [None]
  - Pyelonephritis [None]

NARRATIVE: CASE EVENT DATE: 20150824
